FAERS Safety Report 6172513-6 (Version None)
Quarter: 2009Q2

REPORT INFORMATION
  Report Type: 
  Country: None (occurrence: None)
  Receive Date: 20090429
  Receipt Date: 20090424
  Transmission Date: 20091009
  Serious: Yes (Other)
  Sender: FDA-Public Use
  Company Number: US-GENENTECH-279650

PATIENT
  Sex: Female

DRUGS (2)
  1. RITUXAN [Suspect]
     Indication: NON-HODGKIN'S LYMPHOMA
     Dosage: UNK
     Dates: start: 20080731
  2. CHEMOTHERAPY (UNK INGREDIENTS) [Concomitant]
     Indication: CHEMOTHERAPY

REACTIONS (3)
  - CHILLS [None]
  - NAUSEA [None]
  - THROAT TIGHTNESS [None]
